FAERS Safety Report 23185755 (Version 3)
Quarter: 2023Q4

REPORT INFORMATION
  Report Type: Report from Study
  Country: US (occurrence: US)
  Receive Date: 20231115
  Receipt Date: 20231124
  Transmission Date: 20240109
  Serious: Yes (Death, Life-Threatening, Hospitalization)
  Sender: FDA-Public Use
  Company Number: US-002147023-NVSC2023US243238

PATIENT
  Age: 75 Year
  Sex: Female
  Weight: 89.5 kg

DRUGS (1)
  1. ENTRESTO [Suspect]
     Active Substance: SACUBITRIL\VALSARTAN
     Indication: Cardiac failure
     Dosage: UNK UNK, BID
     Route: 048
     Dates: start: 20210208

REACTIONS (13)
  - Death [Fatal]
  - Cystitis [Unknown]
  - Mental status changes [Unknown]
  - Gallbladder disorder [Unknown]
  - Nausea [Unknown]
  - Vomiting [Unknown]
  - Oedema peripheral [Unknown]
  - Hallucination [Unknown]
  - Confusional state [Unknown]
  - Altered state of consciousness [Unknown]
  - Cardiac failure [Unknown]
  - Cardiogenic shock [Unknown]
  - Hypotension [Unknown]

NARRATIVE: CASE EVENT DATE: 20231105
